FAERS Safety Report 6175582-2 (Version None)
Quarter: 2009Q2

REPORT INFORMATION
  Report Type: 
  Country: None (occurrence: None)
  Receive Date: 20090501
  Receipt Date: 20090325
  Transmission Date: 20091009
  Serious: Yes (Hospitalization)
  Sender: FDA-Public Use
  Company Number: FR-JNJFOC-20090407020

PATIENT
  Sex: Male

DRUGS (5)
  1. IXPRIM [Suspect]
     Indication: SCIATICA
     Dosage: 4-5 DOSES A DAY
     Route: 048
     Dates: start: 20090201, end: 20090227
  2. PLAVIX [Suspect]
     Indication: PERIPHERAL ARTERIAL OCCLUSIVE DISEASE
     Route: 048
     Dates: start: 20090205, end: 20090227
  3. RIVOTRIL [Concomitant]
     Dosage: 0.5 MG TO 1 MG DAILY
     Route: 065
  4. ASPEGIC 1000 [Concomitant]
     Route: 065
  5. LYRICA [Concomitant]
     Dosage: INCREASING DOSE 2,3,4 THEN 5 DAILY TABLETS IN 2 INTAKES
     Route: 065

REACTIONS (1)
  - THROMBOCYTOPENIC PURPURA [None]
